FAERS Safety Report 4429594-7 (Version None)
Quarter: 2004Q3

REPORT INFORMATION
  Report Type: 
  Country: None (occurrence: None)
  Receive Date: 20040816
  Receipt Date: 20040812
  Transmission Date: 20050211
  Serious: No
  Sender: FDA-Public Use
  Company Number: 03H-167-0239028-00

PATIENT

DRUGS (2)
  1. DEXMEDETOMIDINE INJECTION (DEXAMEDETOMIDINE HYDROCHLORIDE INJECTION) ( [Suspect]
     Indication: SEDATION
     Dosage: INTRAVENOUS
     Route: 042
  2. PROPOFOL [Concomitant]

REACTIONS (2)
  - HYPOTENSION [None]
  - THERAPY NON-RESPONDER [None]
